FAERS Safety Report 5086576-2 (Version None)
Quarter: 2006Q3

REPORT INFORMATION
  Report Type: 
  Country: None (occurrence: None)
  Receive Date: 20060823
  Receipt Date: 20060411
  Transmission Date: 20061208
  Serious: Yes (Life-Threatening)
  Sender: FDA-Public Use
  Company Number: UG-GLAXOSMITHKLINE-B0419710A

PATIENT
  Age: 45 Year
  Sex: Male

DRUGS (3)
  1. COMBIVIR [Suspect]
     Indication: HIV INFECTION
     Dosage: 1TAB TWICE PER DAY
     Route: 048
     Dates: start: 20030527, end: 20060316
  2. TENOFOVIR [Suspect]
     Indication: HIV INFECTION
     Dosage: 300MG PER DAY
     Route: 048
     Dates: start: 20030527, end: 20060316
  3. COTRIMOXAZOLE [Concomitant]

REACTIONS (14)
  - ABDOMINAL DISTENSION [None]
  - ABDOMINAL PAIN UPPER [None]
  - ANOREXIA [None]
  - ASTHENIA [None]
  - CARDIAC FAILURE [None]
  - CHOLELITHIASIS [None]
  - CONGESTIVE CARDIOMYOPATHY [None]
  - COUGH [None]
  - CREPITATIONS [None]
  - DYSPNOEA PAROXYSMAL NOCTURNAL [None]
  - HEPATIC STEATOSIS [None]
  - HEPATOMEGALY [None]
  - MALAISE [None]
  - OEDEMA PERIPHERAL [None]
